FAERS Safety Report 7046903-3 (Version None)
Quarter: 2010Q4

REPORT INFORMATION
  Report Type: 
  Country: None (occurrence: None)
  Receive Date: 20101015
  Receipt Date: 20101005
  Transmission Date: 20110411
  Serious: Yes (Other)
  Sender: FDA-Public Use
  Company Number: CA-JNJFOC-20101003444

PATIENT
  Sex: Male
  Weight: 98 kg

DRUGS (7)
  1. REMICADE [Suspect]
     Indication: CROHN'S DISEASE
     Dosage: 5 INFUSIONS ON UNSPECIFIED DATES
     Route: 042
  2. REMICADE [Suspect]
     Dosage: 7TH INFUSION
     Route: 042
  3. REMICADE [Suspect]
     Route: 042
  4. PREDNISONE [Concomitant]
  5. TYLENOL W/ CODEINE NO. 3 [Concomitant]
  6. CODEINE [Concomitant]
  7. ACTONEL [Concomitant]

REACTIONS (3)
  - ABDOMINAL PAIN [None]
  - FREQUENT BOWEL MOVEMENTS [None]
  - GASTROINTESTINAL HAEMORRHAGE [None]
